FAERS Safety Report 16351088 (Version 1)
Quarter: 2019Q2

REPORT INFORMATION
  Report Type: Spontaneous
  Country: ES (occurrence: ES)
  Receive Date: 20190524
  Receipt Date: 20190524
  Transmission Date: 20190711
  Serious: Yes (Death, Hospitalization)
  Sender: FDA-Public Use
  Company Number: ES-TEVA-2019-ES-1052187

PATIENT
  Age: 89 Year
  Sex: Female

DRUGS (2)
  1. ATORVASTATINA (7400A) [Suspect]
     Active Substance: ATORVASTATIN
     Indication: DYSLIPIDAEMIA
     Dosage: 20 MG DIA
     Route: 048
     Dates: start: 20150318, end: 20190112
  2. FUROSEMIDA (1615A) [Concomitant]
     Active Substance: FUROSEMIDE
     Dosage: 40 MG DIA
     Route: 048
     Dates: start: 20181214, end: 20190112

REACTIONS (3)
  - Hepatitis [Not Recovered/Not Resolved]
  - Acute kidney injury [Fatal]
  - Rhabdomyolysis [Fatal]

NARRATIVE: CASE EVENT DATE: 20190112
